FAERS Safety Report 12845532 (Version 1)
Quarter: 2016Q4

REPORT INFORMATION
  Report Type: Spontaneous
  Country: US (occurrence: US)
  Receive Date: 20161013
  Receipt Date: 20161013
  Transmission Date: 20170207
  Serious: No
  Sender: FDA-Public Use
  Company Number: US-JAZZ-2016-US-013805

PATIENT
  Sex: Male

DRUGS (30)
  1. CLINDAMYCIN PHOSPHATE. [Concomitant]
     Active Substance: CLINDAMYCIN PHOSPHATE
  2. CURCUMIN [Concomitant]
     Active Substance: CURCUMIN
  3. FLONASE [Concomitant]
     Active Substance: FLUTICASONE PROPIONATE
  4. PERCOCET [Concomitant]
     Active Substance: ACETAMINOPHEN\OXYCODONE HYDROCHLORIDE
  5. XYREM [Suspect]
     Active Substance: SODIUM OXYBATE
     Dosage: DOSE ADJUSTMENTS
     Route: 048
     Dates: start: 200311, end: 201108
  6. CORTEF [Concomitant]
     Active Substance: HYDROCORTISONE
  7. DENAVIR [Concomitant]
     Active Substance: PENCICLOVIR
  8. MARINOL [Concomitant]
     Active Substance: DRONABINOL
  9. VALTREX [Concomitant]
     Active Substance: VALACYCLOVIR HYDROCHLORIDE
  10. VITAMIN C TR [Concomitant]
  11. DIFLUCAN [Concomitant]
     Active Substance: FLUCONAZOLE
  12. GLUTATHIONE-L [Concomitant]
  13. METHADONE HCL [Concomitant]
     Active Substance: METHADONE HYDROCHLORIDE
  14. PRILOSEC [Concomitant]
     Active Substance: OMEPRAZOLE MAGNESIUM
  15. PROVENTIL HFA [Concomitant]
     Active Substance: ALBUTEROL SULFATE
  16. XYREM [Suspect]
     Active Substance: SODIUM OXYBATE
     Dosage: 4.5 G, BID
     Route: 048
     Dates: start: 201108
  17. PROBIOTIC [Concomitant]
     Active Substance: PROBIOTICS NOS
  18. ALPHA LIPOIC ACID [Concomitant]
     Active Substance: .ALPHA.-LIPOIC ACID
  19. AXIRON [Concomitant]
     Active Substance: TESTOSTERONE
  20. CLONIDINE HCL [Concomitant]
     Active Substance: CLONIDINE HYDROCHLORIDE
  21. CLOTRIMAZOLE. [Concomitant]
     Active Substance: CLOTRIMAZOLE
  22. XYREM [Suspect]
     Active Substance: SODIUM OXYBATE
     Indication: FIBROMYALGIA
     Dosage: 2.25 G, BID
     Route: 048
     Dates: start: 200310, end: 200311
  23. CARDIZEM CD [Concomitant]
     Active Substance: DILTIAZEM HYDROCHLORIDE
  24. CLARITIN [Concomitant]
     Active Substance: LORATADINE
  25. EPIPEN [Concomitant]
     Active Substance: EPINEPHRINE
  26. SORBITOL. [Concomitant]
     Active Substance: SORBITOL
  27. ZESTRIL [Concomitant]
     Active Substance: LISINOPRIL
  28. FLOMAX [Concomitant]
     Active Substance: TAMSULOSIN HYDROCHLORIDE
  29. IBUPROFEN. [Concomitant]
     Active Substance: IBUPROFEN
  30. VITAMIN B12 [Concomitant]
     Active Substance: CYANOCOBALAMIN

REACTIONS (1)
  - Infection [Not Recovered/Not Resolved]
